FAERS Safety Report 8368176-1 (Version None)
Quarter: 2012Q2

REPORT INFORMATION
  Report Type: 
  Country: None (occurrence: None)
  Receive Date: 20120517
  Receipt Date: 20120515
  Transmission Date: 20120825
  Serious: Yes (Other)
  Sender: FDA-Public Use
  Company Number: CHPA2012US008633

PATIENT
  Age: 73 Year
  Sex: Male

DRUGS (7)
  1. RAMIPRIL [Concomitant]
     Indication: MYOCARDIAL INFARCTION
     Dosage: UNK
     Dates: start: 20060101
  2. PREVACID 24 HR [Suspect]
     Indication: HAEMORRHAGE
     Dosage: 30 MG, QD
     Route: 048
     Dates: start: 20090101
  3. LIPITOR [Concomitant]
     Indication: MYOCARDIAL INFARCTION
     Dosage: UNK, AT NIGHT
     Dates: start: 20060101
  4. PLAVIX [Concomitant]
     Indication: MYOCARDIAL INFARCTION
     Dosage: UNK
     Dates: start: 20060101
  5. LORAZEPAM [Concomitant]
     Indication: MYOCARDIAL INFARCTION
     Dosage: 0.5 MG, TID
     Dates: start: 20060101
  6. ASPIRIN [Concomitant]
     Indication: MYOCARDIAL INFARCTION
     Dosage: 325 MG, UNK
     Route: 048
     Dates: start: 20060101
  7. METOPROLOL [Concomitant]
     Indication: MYOCARDIAL INFARCTION
     Dosage: UNK
     Dates: start: 20060101

REACTIONS (4)
  - OFF LABEL USE [None]
  - INCORRECT DRUG ADMINISTRATION DURATION [None]
  - TOOTH ABSCESS [None]
  - OVERDOSE [None]
